FAERS Safety Report 22033613 (Version 1)
Quarter: 2023Q1

REPORT INFORMATION
  Report Type: Spontaneous
  Country: US (occurrence: None)
  Receive Date: 20230222
  Receipt Date: 20230222
  Transmission Date: 20230418
  Serious: No
  Sender: FDA-Public Use
  Company Number: None

PATIENT
  Sex: Male
  Weight: 84.82 kg

DRUGS (8)
  1. VOTRIENT [Suspect]
     Active Substance: PAZOPANIB HYDROCHLORIDE
     Indication: Malignant connective tissue neoplasm
     Dosage: FREQUENCY : DAILY;?
     Route: 048
     Dates: start: 202212
  2. VOTRIENT [Suspect]
     Active Substance: PAZOPANIB HYDROCHLORIDE
     Indication: Soft tissue sarcoma
  3. ATORVASTATIN [Concomitant]
  4. ELIQUIS [Concomitant]
  5. FLOMAX [Concomitant]
  6. LISINOPRIL [Concomitant]
  7. TEGRETOL [Concomitant]
     Active Substance: CARBAMAZEPINE
  8. TEMPAZEPAM [Concomitant]

REACTIONS (3)
  - Limb mass [None]
  - Malignant connective tissue neoplasm [None]
  - Malignant neoplasm progression [None]
